FAERS Safety Report 9501692 (Version 3)
Quarter: 2013Q4

REPORT INFORMATION
  Report Type: Spontaneous
  Country: US (occurrence: None)
  Receive Date: 20130107
  Receipt Date: 20131226
  Transmission Date: 20140711
  Serious: Yes (Hospitalization)
  Sender: FDA-Public Use
  Company Number: PHEH2012US022533

PATIENT
  Age: 52 Year
  Sex: Male

DRUGS (1)
  1. GILENYA (FINGOLIMOD) CAPSULE, 0.5MG [Suspect]
     Indication: MULTIPLE SCLEROSIS
     Route: 048
     Dates: start: 201110

REACTIONS (6)
  - Staphylococcal infection [None]
  - Tension [None]
  - Arthritis [None]
  - Muscle spasms [None]
  - Muscular weakness [None]
  - Myalgia [None]
